FAERS Safety Report 7328786-7 (Version None)
Quarter: 2011Q1

REPORT INFORMATION
  Report Type: 
  Country: None (occurrence: None)
  Receive Date: 20110303
  Receipt Date: 20110222
  Transmission Date: 20110831
  Serious: Yes (Other)
  Sender: FDA-Public Use
  Company Number: PHHY2010BR47935

PATIENT
  Sex: Male

DRUGS (2)
  1. EXELON [Suspect]
     Indication: AMNESIA
     Dosage: 9 MG/5 CM2, 1 PATCH PER DAY
     Route: 062
     Dates: start: 20100716
  2. DRUG THERAPY NOS [Concomitant]

REACTIONS (3)
  - EXPIRED DRUG ADMINISTERED [None]
  - HALLUCINATION, VISUAL [None]
  - BRADYPHRENIA [None]
